FAERS Safety Report 6111159-2 (Version None)
Quarter: 2009Q1

REPORT INFORMATION
  Report Type: 
  Country: None (occurrence: None)
  Receive Date: 20090311
  Receipt Date: 20081021
  Transmission Date: 20090719
  Serious: No
  Sender: FDA-Public Use
  Company Number: US-KINGPHARMUSA00001-K200801226

PATIENT

DRUGS (1)
  1. ALTACE [Suspect]
     Dates: end: 20081001

REACTIONS (1)
  - ANXIETY [None]
